FAERS Safety Report 5807209-0 (Version None)
Quarter: 2008Q3

REPORT INFORMATION
  Report Type: 
  Country: None (occurrence: None)
  Receive Date: 20080711
  Receipt Date: 20080704
  Transmission Date: 20090109
  Serious: Yes (Hospitalization)
  Sender: FDA-Public Use
  Company Number: B0528088A

PATIENT
  Age: 75 Year
  Sex: Female

DRUGS (5)
  1. VENTOLIN [Suspect]
     Route: 055
     Dates: start: 20071209, end: 20071218
  2. OGAST [Suspect]
     Route: 042
     Dates: start: 20071209, end: 20071213
  3. SOLU-MEDROL [Suspect]
     Route: 042
     Dates: start: 20071209, end: 20071211
  4. SOLUPRED [Suspect]
     Route: 048
     Dates: start: 20071211, end: 20071213
  5. ATROVENT [Suspect]
     Route: 055
     Dates: start: 20071209, end: 20071218

REACTIONS (5)
  - ALLERGY TEST POSITIVE [None]
  - EOSINOPHILIA [None]
  - ERYTHEMA [None]
  - FEELING HOT [None]
  - RASH MACULO-PAPULAR [None]
